FAERS Safety Report 12555865 (Version 1)
Quarter: 2016Q3

REPORT INFORMATION
  Report Type: Spontaneous
  Country: US (occurrence: None)
  Receive Date: 20160713
  Receipt Date: 20160713
  Transmission Date: 20161109
  Serious: No
  Sender: FDA-Public Use
  Company Number: None

PATIENT
  Age: 81 Year
  Sex: Male

DRUGS (3)
  1. SPRYCEL [Suspect]
     Active Substance: DASATINIB
     Indication: CHRONIC MYELOID LEUKAEMIA
  2. SPRYCEL [Suspect]
     Active Substance: DASATINIB
     Indication: THROMBOCYTOPENIA
  3. SPRYCEL [Suspect]
     Active Substance: DASATINIB
     Indication: ANAEMIA

REACTIONS (2)
  - Dyspnoea [None]
  - Fatigue [None]

NARRATIVE: CASE EVENT DATE: 20160712
